FAERS Safety Report 19080673 (Version 1)
Quarter: 2021Q1

REPORT INFORMATION
  Report Type: Spontaneous
  Country: US (occurrence: US)
  Receive Date: 20210331
  Receipt Date: 20210331
  Transmission Date: 20210420
  Serious: Yes (Other)
  Sender: FDA-Public Use
  Company Number: US-AMERICAN REGENT INC-2021000774

PATIENT
  Age: 44 Year
  Sex: Male
  Weight: 150 kg

DRUGS (11)
  1. ANGIOTENSIN II [Suspect]
     Active Substance: ANGIOTENSIN II
     Indication: SHOCK
     Dosage: 10 NG/KG/MIN
  2. HYDROCORTISONE. [Concomitant]
     Active Substance: HYDROCORTISONE
     Indication: SEPTIC SHOCK
  3. VASOPRESSIN INJECTION, USP [Suspect]
     Active Substance: VASOPRESSIN
     Indication: SHOCK
     Dosage: UNK
  4. HYDROCORTISONE. [Concomitant]
     Active Substance: HYDROCORTISONE
     Indication: SHOCK
     Dosage: UNK
  5. EPINEPHRINE INJECTION, USP (0517?1071?01) [Suspect]
     Active Substance: EPINEPHRINE
     Indication: SHOCK
     Dosage: UNK
  6. EPINEPHRINE INJECTION, USP (0517?1071?01) [Suspect]
     Active Substance: EPINEPHRINE
     Indication: SEPTIC SHOCK
  7. VASOPRESSIN INJECTION, USP [Suspect]
     Active Substance: VASOPRESSIN
     Indication: SEPTIC SHOCK
  8. NOREPINEPHRINE. [Suspect]
     Active Substance: NOREPINEPHRINE
     Indication: SEPTIC SHOCK
  9. HEPARIN [Concomitant]
     Active Substance: HEPARIN SODIUM
     Indication: THROMBOSIS PROPHYLAXIS
     Dosage: 5000 UNITS EVERY 8 HOURS
     Route: 058
  10. NOREPINEPHRINE. [Suspect]
     Active Substance: NOREPINEPHRINE
     Indication: SHOCK
     Dosage: UNK
  11. ANGIOTENSIN II [Suspect]
     Active Substance: ANGIOTENSIN II
     Indication: SEPTIC SHOCK

REACTIONS (4)
  - Mesenteric vein thrombosis [Not Recovered/Not Resolved]
  - Product use in unapproved indication [Unknown]
  - Abdominal pain [Not Recovered/Not Resolved]
  - Intestinal ischaemia [Not Recovered/Not Resolved]
